FAERS Safety Report 16827109 (Version 1)
Quarter: 2019Q3

REPORT INFORMATION
  Report Type: Report from Study
  Country: VN (occurrence: VN)
  Receive Date: 20190919
  Receipt Date: 20190919
  Transmission Date: 20191005
  Serious: Yes (Other)
  Sender: FDA-Public Use
  Company Number: VN-ROCHE-2122199

PATIENT
  Age: 28 Year

DRUGS (1)
  1. ALTEPLASE. [Suspect]
     Active Substance: ALTEPLASE
     Indication: ISCHAEMIC STROKE
     Dosage: 10% AS BOLUS (1 IN 1 ONCE)
     Route: 040

REACTIONS (2)
  - Cerebral haemorrhage [Recovered/Resolved]
  - Brain midline shift [Unknown]
